FAERS Safety Report 15997645 (Version 3)
Quarter: 2019Q3

REPORT INFORMATION
  Report Type: Spontaneous
  Country: US (occurrence: US)
  Receive Date: 20190222
  Receipt Date: 20190726
  Transmission Date: 20191004
  Serious: Yes (Death, Hospitalization, Other)
  Sender: FDA-Public Use
  Company Number: US-ASTRAZENECA-2019SE10231

PATIENT
  Sex: Male
  Weight: 83.9 kg

DRUGS (14)
  1. PREVACID 24 HR [Suspect]
     Active Substance: LANSOPRAZOLE
     Route: 065
  2. TUMS [Concomitant]
     Active Substance: CALCIUM CARBONATE
  3. AXID [Concomitant]
     Active Substance: NIZATIDINE
  4. PROLIC [Concomitant]
  5. PRILOSEC [Suspect]
     Active Substance: OMEPRAZOLE MAGNESIUM
     Dosage: FOR MULTIPLE AND VARIOUS YEARS
     Route: 048
     Dates: start: 2006
  6. OMEPRAZOLE + SODIUM [Suspect]
     Active Substance: OMEPRAZOLE SODIUM
     Route: 065
  7. CIMETIDINE HYDROCHLORIDE. [Concomitant]
     Active Substance: CIMETIDINE HYDROCHLORIDE
  8. DUEXIS [Concomitant]
     Active Substance: FAMOTIDINE\IBUPROFEN
  9. PEPCID [Concomitant]
     Active Substance: FAMOTIDINE
  10. TAGAMET [Concomitant]
     Active Substance: CIMETIDINE
  11. AXID OTC [Concomitant]
  12. FAMOTIDINE. [Concomitant]
     Active Substance: FAMOTIDINE
  13. CIMETIDINE [Concomitant]
     Active Substance: CIMETIDINE
  14. NIZATIDINE. [Concomitant]
     Active Substance: NIZATIDINE

REACTIONS (8)
  - Chronic kidney disease [Unknown]
  - Fall [Not Recovered/Not Resolved]
  - Death [Fatal]
  - Rebound acid hypersecretion [Unknown]
  - Renal injury [Unknown]
  - Lung perforation [Not Recovered/Not Resolved]
  - Renal failure [Unknown]
  - Rib fracture [Not Recovered/Not Resolved]
